FAERS Safety Report 7182512-3 (Version None)
Quarter: 2010Q4

REPORT INFORMATION
  Report Type: 
  Country: None (occurrence: None)
  Receive Date: 20101221
  Receipt Date: 20100514
  Transmission Date: 20110411
  Serious: No
  Sender: FDA-Public Use
  Company Number: US-AMGEN-KDL412441

PATIENT

DRUGS (4)
  1. ENBREL [Suspect]
     Indication: PRODUCT USED FOR UNKNOWN INDICATION
     Dosage: 50 MG, QWK
     Route: 058
  2. DILTIAZEM HYDROCHLORIDE [Concomitant]
     Dosage: 120 MG, UNK
  3. LAMOTRIGINE [Concomitant]
     Dosage: 100 MG, UNK
  4. BUPROPION [Concomitant]
     Dosage: 75 MG, UNK

REACTIONS (2)
  - CONTUSION [None]
  - INJECTION SITE HAEMATOMA [None]
